FAERS Safety Report 4674347-8 (Version None)
Quarter: 2005Q2

REPORT INFORMATION
  Report Type: 
  Country: None (occurrence: None)
  Receive Date: 20050526
  Receipt Date: 20050427
  Transmission Date: 20051028
  Serious: Yes (Other)
  Sender: FDA-Public Use
  Company Number: ES-BRISTOL-MYERS SQUIBB COMPANY-12950507

PATIENT
  Age: 80 Year
  Sex: Female

DRUGS (5)
  1. ABILIFY [Suspect]
     Indication: DELIRIUM
     Route: 048
     Dates: start: 20050408, end: 20050414
  2. SEGURIL [Concomitant]
     Indication: HYPERTENSION
     Dates: start: 20050408, end: 20050412
  3. REXER [Concomitant]
     Dates: end: 20050414
  4. DISTRANEURINE [Concomitant]
     Indication: INSOMNIA
     Dates: start: 20050405, end: 20050414
  5. ENALAPRIL MALEATE [Concomitant]
     Indication: HYPERTENSION
     Dates: end: 20050414

REACTIONS (1)
  - INAPPROPRIATE ANTIDIURETIC HORMONE SECRETION [None]
